FAERS Safety Report 5089922-9 (Version None)
Quarter: 2006Q3

REPORT INFORMATION
  Report Type: 
  Country: None (occurrence: None)
  Receive Date: 20060828
  Receipt Date: 20060720
  Transmission Date: 20061208
  Serious: Yes (Hospitalization, Other)
  Sender: FDA-Public Use
  Company Number: ES-AVENTIS-200617529GDDC

PATIENT
  Age: 65 Year
  Sex: Female
  Weight: 89 kg

DRUGS (12)
  1. STUDY MED NOT GIVEN [Suspect]
  2. LANTUS [Suspect]
     Indication: DIABETES MELLITUS
     Route: 058
     Dates: start: 20060302
  3. OPTIPEN (INSULIN PUMP) [Suspect]
  4. GLIMEPIRIDE [Suspect]
     Indication: DIABETES MELLITUS
     Route: 048
     Dates: start: 19990212
  5. ASPIRIN [Suspect]
     Indication: CARDIOVASCULAR EVENT PROPHYLAXIS
     Route: 048
     Dates: start: 20060224
  6. METFORMIN HCL [Suspect]
     Indication: DIABETES MELLITUS
     Route: 048
     Dates: start: 19990212
  7. FENOFIBRATE [Suspect]
     Indication: DYSLIPIDAEMIA
     Route: 048
     Dates: start: 20041229
  8. HYDROCHLOROTHIAZIDE [Suspect]
     Indication: HYPERTENSION
     Route: 048
     Dates: start: 20040224
  9. DOXAZOSIN MESYLATE [Suspect]
     Indication: HYPERTENSION
     Route: 048
     Dates: start: 20000328
  10. ATENOLOL [Concomitant]
     Indication: HYPERTENSION
     Route: 048
  11. TRINIPATCH [Concomitant]
     Indication: ANGINA PECTORIS
     Route: 061
  12. COAPROVEL [Concomitant]
     Indication: HYPERTENSION
     Dosage: DOSE: 300/125
     Route: 048
     Dates: start: 20040224, end: 20060716

REACTIONS (5)
  - ANGINA PECTORIS [None]
  - DYSPNOEA [None]
  - ERYTHEMA INFECTIOSUM [None]
  - PANCYTOPENIA [None]
  - PYREXIA [None]
